FAERS Safety Report 8254484-1 (Version None)
Quarter: 2012Q2

REPORT INFORMATION
  Report Type: 
  Country: None (occurrence: None)
  Receive Date: 20120403
  Receipt Date: 20120308
  Transmission Date: 20120825
  Serious: No
  Sender: FDA-Public Use
  Company Number: US-BIOGENIDEC-2012BI003189

PATIENT
  Age: 50 Year
  Sex: Male

DRUGS (1)
  1. TYSABRI [Suspect]
     Indication: MULTIPLE SCLEROSIS
     Route: 042
     Dates: start: 20120125

REACTIONS (6)
  - VEIN PAIN [None]
  - PRURITUS [None]
  - DEHYDRATION [None]
  - MUSCULOSKELETAL PAIN [None]
  - MUSCLE RUPTURE [None]
  - INFUSION RELATED REACTION [None]
